FAERS Safety Report 8409543-7 (Version None)
Quarter: 2012Q2

REPORT INFORMATION
  Report Type: 
  Country: None (occurrence: None)
  Receive Date: 20120323
  Receipt Date: 20110202
  Transmission Date: 20120825
  Serious: Yes (Other)
  Sender: FDA-Public Use
  Company Number: 163-21880-11010344

PATIENT
  Age: 87 Year
  Sex: Male

DRUGS (4)
  1. PROSCAR [Concomitant]
  2. REVLIMID [Suspect]
     Indication: MULTIPLE MYELOMA
     Dosage: 10 MG, QD X 21 DAYS, PO, 15 MG, QD X 21 DAYS, PO
     Route: 048
     Dates: start: 20100901
  3. REVLIMID [Suspect]
     Indication: MULTIPLE MYELOMA
     Dosage: 10 MG, QD X 21 DAYS, PO, 15 MG, QD X 21 DAYS, PO
     Route: 048
     Dates: start: 20101220, end: 20110105
  4. FLOMAX [Concomitant]

REACTIONS (3)
  - OEDEMA PERIPHERAL [None]
  - DEEP VEIN THROMBOSIS [None]
  - THROMBOSIS [None]
